FAERS Safety Report 10203338 (Version 2)
Quarter: 2014Q3

REPORT INFORMATION
  Report Type: Report from Study
  Country: BR (occurrence: BR)
  Receive Date: 20140529
  Receipt Date: 20140727
  Transmission Date: 20150326
  Serious: Yes (Other)
  Sender: FDA-Public Use
  Company Number: PHHY2014BR060197

PATIENT
  Sex: Male
  Weight: 57 kg

DRUGS (16)
  1. SANDOSTATIN LAR DEPOT [Suspect]
     Active Substance: OCTREOTIDE ACETATE
     Indication: ACROMEGALY
     Dosage: 1 DF, EVERY MONTH
     Route: 030
     Dates: start: 20070821
  2. OMEPRAZOLE. [Concomitant]
     Active Substance: OMEPRAZOLE
     Indication: PROPHYLAXIS AGAINST GASTROINTESTINAL ULCER
     Dosage: 2 DF, DAILY
     Route: 048
  3. ATORVASTATIN [Concomitant]
     Active Substance: ATORVASTATIN
     Indication: BLOOD CHOLESTEROL INCREASED
     Dosage: 2 DF,DAILY
     Route: 048
  4. SEROQUEL [Concomitant]
     Active Substance: QUETIAPINE FUMARATE
     Indication: SLEEP DISORDER
     Dosage: 0.5 DF,DAILY
     Route: 048
  5. SECOTEX ADV [Concomitant]
     Active Substance: TAMSULOSIN
     Indication: BLADDER DISORDER
  6. ENALAPRIL [Concomitant]
     Active Substance: ENALAPRIL
     Indication: BLOOD PRESSURE ABNORMAL
     Dosage: UNK UKN, UNK
     Route: 048
  7. SECOTEX ADV [Concomitant]
     Active Substance: TAMSULOSIN
     Indication: PROSTATIC DISORDER
     Dosage: 1 DF, DAILY
     Route: 048
  8. DEPRESS//FLUOXETINE HYDROCHLORIDE [Concomitant]
     Dosage: 1 DF, DAILY
     Route: 048
  9. LEVOTHYROXINE SODIUM. [Concomitant]
     Active Substance: LEVOTHYROXINE SODIUM
     Indication: THYROID DISORDER
     Dosage: 1 DF, DAILY
     Route: 048
  10. VERTIX//FLUNARIZINE DIHYDROCHLORIDE [Concomitant]
     Indication: EAR DISORDER
     Dosage: 1 DF, DAILY
     Route: 048
  11. CHOLECALCIFEROL [Concomitant]
     Active Substance: CHOLECALCIFEROL
     Dosage: ONCE EVERY WEEK
     Route: 048
  12. AMLODIPINE [Concomitant]
     Active Substance: AMLODIPINE BESYLATE
     Indication: PROPHYLAXIS
     Dosage: 1 DF, DAILY
     Route: 048
  13. HIGROTON [Concomitant]
     Active Substance: CHLORTHALIDONE
     Indication: BLOOD PRESSURE ABNORMAL
     Dosage: 1 DF, DAILY
     Route: 048
  14. ENABLEX [Concomitant]
     Active Substance: DARIFENACIN\DARIFENACIN HYDROBROMIDE
     Dosage: 0.5 DF, DAILY
     Route: 048
  15. AAS [Concomitant]
     Active Substance: ASPIRIN
     Dosage: UNK UKN, DAILY
     Route: 048
  16. VITAMIN E [Concomitant]
     Active Substance: .ALPHA.-TOCOPHEROL
     Dosage: 1 DF, QOD

REACTIONS (7)
  - Gait disturbance [Not Recovered/Not Resolved]
  - Feeling abnormal [Not Recovered/Not Resolved]
  - Aggression [Recovering/Resolving]
  - Body height decreased [Not Recovered/Not Resolved]
  - Dementia Alzheimer^s type [Not Recovered/Not Resolved]
  - Scar [Not Recovered/Not Resolved]
  - Weight decreased [Recovering/Resolving]
